FAERS Safety Report 5693713-5 (Version None)
Quarter: 2008Q2

REPORT INFORMATION
  Report Type: 
  Country: None (occurrence: None)
  Receive Date: 20080403
  Receipt Date: 20080331
  Transmission Date: 20081010
  Serious: Yes (Death, Life-Threatening, Hospitalization)
  Sender: FDA-Public Use
  Company Number: PHRM2008FR01140

PATIENT
  Age: 59 Year
  Sex: Male

DRUGS (12)
  1. LIORESAL [Suspect]
     Dosage: 15 MG, QD
     Route: 048
     Dates: end: 20071210
  2. VANCOMYCIN [Suspect]
     Indication: OSTEITIS
     Dosage: 2 G, QD
     Route: 042
     Dates: start: 20071207, end: 20071210
  3. LOVENOX [Suspect]
     Dosage: 1 DF, QD
     Route: 058
     Dates: start: 20071122, end: 20071210
  4. ESOMEPRAZOLE MAGNESIUM [Suspect]
     Dosage: 20 MG, QD
     Route: 048
     Dates: start: 20071122, end: 20071210
  5. OSTRAM-VIT.D3 [Suspect]
     Dosage: 1 DF, QD
     Route: 048
     Dates: start: 20071122, end: 20071211
  6. OLICLINOMEL [Suspect]
     Dosage: 2 L, QD
     Route: 042
     Dates: end: 20071209
  7. POLARAMINE [Suspect]
     Dosage: 1 DF, QD
     Route: 048
     Dates: end: 20071210
  8. TRIFLUCAN [Suspect]
     Dosage: 400 MG, QD
     Route: 048
     Dates: end: 20071210
  9. LASIX [Suspect]
     Dosage: 60 MG, QD
     Route: 048
     Dates: end: 20071210
  10. SERESTA [Suspect]
     Dosage: 10 MG, QD
     Route: 048
     Dates: end: 20071206
  11. DUPHALAC /SCH/ [Suspect]
     Dosage: UNK, UNK
     Route: 048
     Dates: start: 20071122
  12. PERFALGAN [Suspect]
     Route: 042
     Dates: start: 20071123

REACTIONS (6)
  - DEATH [None]
  - LEUKOPENIA [None]
  - LYMPHOPENIA [None]
  - NEUTROPENIA [None]
  - NORMOCHROMIC NORMOCYTIC ANAEMIA [None]
  - THROMBOCYTOPENIA [None]
